FAERS Safety Report 17726962 (Version 1)
Quarter: 2020Q2

REPORT INFORMATION
  Report Type: Spontaneous
  Country: CA (occurrence: CA)
  Receive Date: 20200430
  Receipt Date: 20200430
  Transmission Date: 20200714
  Serious: Yes (Hospitalization)
  Sender: FDA-Public Use
  Company Number: CA-UCBSA-2020017676

PATIENT
  Age: 29 Year
  Sex: Female
  Weight: 57 kg

DRUGS (3)
  1. CIMZIA [Suspect]
     Active Substance: CERTOLIZUMAB PEGOL
     Dosage: 400 MILLIGRAM, MONTHLY (QM)
     Route: 058
  2. CIMZIA [Suspect]
     Active Substance: CERTOLIZUMAB PEGOL
     Indication: RHEUMATOID ARTHRITIS
     Dosage: 400 MILLIGRAM, EV 2 WEEKS(QOW)
     Route: 058
  3. SYNTHROID [Concomitant]
     Active Substance: LEVOTHYROXINE SODIUM
     Indication: PRODUCT USED FOR UNKNOWN INDICATION

REACTIONS (13)
  - Depressed mood [Unknown]
  - Stress [Unknown]
  - Burning sensation [Unknown]
  - Pain [Unknown]
  - Dyspnoea [Unknown]
  - Pityriasis [Unknown]
  - Sputum discoloured [Unknown]
  - Chest pain [Unknown]
  - Erythema [Unknown]
  - Pruritus [Unknown]
  - Pustular psoriasis [Unknown]
  - Erythrodermic psoriasis [Unknown]
  - Dry skin [Unknown]
